FAERS Safety Report 8398435-8 (Version None)
Quarter: 2012Q1

REPORT INFORMATION
  Report Type: 
  Country: None (occurrence: None)
  Receive Date: 20120323
  Receipt Date: 20111108
  Transmission Date: 20120608
  Serious: Yes (Life-Threatening, Hospitalization)
  Sender: FDA-Public Use
  Company Number: 163-21880-11102996

PATIENT
  Age: 72 Year
  Sex: Female
  Weight: 52.6173 kg

DRUGS (8)
  1. VENLAFAXINE HCL [Concomitant]
  2. MIRTAZAPINE [Concomitant]
  3. SIMVASTATIN [Concomitant]
  4. REVLIMID [Suspect]
     Indication: MULTIPLE MYELOMA
     Dosage: 15 MG, DAILY FOR 21 DAYS OFF 7 DAYS, PO
     Route: 048
     Dates: start: 20111017
  5. DEXAMETHASONE [Concomitant]
  6. LEVOTHYROXINE SODIUM [Concomitant]
  7. ZYPREXA [Concomitant]
  8. ASACOL [Concomitant]

REACTIONS (5)
  - DYSARTHRIA [None]
  - BACK PAIN [None]
  - SOMNOLENCE [None]
  - PNEUMONIA [None]
  - DISORIENTATION [None]
